FAERS Safety Report 9910252 (Version 2)
Quarter: 2014Q2

REPORT INFORMATION
  Report Type: Spontaneous
  Country: US (occurrence: US)
  Receive Date: 20140219
  Receipt Date: 20140425
  Transmission Date: 20141212
  Serious: Yes (Other)
  Sender: FDA-Public Use
  Company Number: US-JNJFOC-20140209930

PATIENT
  Age: 69 Year
  Sex: Female
  Weight: 95.26 kg

DRUGS (8)
  1. INVEGA [Suspect]
     Indication: SCHIZOPHRENIA
     Route: 048
     Dates: start: 20110525, end: 201307
  2. ZYPREXA [Concomitant]
     Route: 065
  3. DOCUSATE SODIUM [Concomitant]
     Indication: CONSTIPATION
     Route: 065
  4. INSULIN ASPART [Concomitant]
     Indication: TYPE 2 DIABETES MELLITUS
     Route: 065
  5. LEVEMIR [Concomitant]
     Indication: TYPE 2 DIABETES MELLITUS
     Route: 065
  6. LOSARTAN [Concomitant]
     Indication: TYPE 2 DIABETES MELLITUS
     Route: 065
  7. LOVASTATIN [Concomitant]
     Indication: HYPERLIPIDAEMIA
     Route: 065
  8. LOVASTATIN [Concomitant]
     Indication: TYPE 2 DIABETES MELLITUS
     Route: 065

REACTIONS (2)
  - Renal impairment [Unknown]
  - Schizophrenia, catatonic type [Unknown]
